FAERS Safety Report 23729069 (Version 2)
Quarter: 2024Q4

REPORT INFORMATION
  Report Type: Spontaneous
  Country: IT (occurrence: IT)
  Receive Date: 20240410
  Receipt Date: 20241219
  Transmission Date: 20250114
  Serious: No
  Sender: SANDOZ
  Company Number: IT-SANDOZ-SDZ2024IT030052

PATIENT
  Age: 47 Year
  Sex: Female

DRUGS (3)
  1. OMNITROPE [Suspect]
     Active Substance: SOMATROPIN
     Dosage: 10 MG/ML SOLUTION FOR INJECTION - ^15 MG/1.5 ML - SOLUTION FOR INJECTION IN A CARTRIDGE
     Route: 058
  2. OMNITROPE [Suspect]
     Active Substance: SOMATROPIN
     Indication: Product used for unknown indication
     Dosage: UNK, 10 MG/ML, SOLUTION FOR INJECTION
     Route: 058
  3. OMNITROPE [Suspect]
     Active Substance: SOMATROPIN
     Dosage: UNK, 10/1.5 MG/ML SOLUTION FOR INJECTION IN A CARTRIDGE
     Route: 058

REACTIONS (2)
  - Drug dose omission by device [Unknown]
  - Device occlusion [Unknown]
